FAERS Safety Report 8778908 (Version 1)
Quarter: 2012Q4

REPORT INFORMATION
  Report Type: 
  Country: IL (occurrence: IL)
  Receive Date: 20120912
  Receipt Date: 20120912
  Transmission Date: 20130627
  Serious: Yes (Hospitalization)
  Sender: FDA-Public Use
  Company Number: PHHY2012IL078190

PATIENT
  Age: 16 Year
  Sex: Male

DRUGS (2)
  1. TOBI PODHALER [Suspect]
     Indication: CYSTIC FIBROSIS
     Dosage: 112 mg x 2 days
     Dates: start: 20120728, end: 20120728
  2. TOBI [Suspect]
     Dosage: 300 mg/ 5 ml, BID

REACTIONS (2)
  - Haemoptysis [Recovering/Resolving]
  - Dyspnoea [Recovering/Resolving]
